FAERS Safety Report 13261143 (Version 1)
Quarter: 2017Q1

REPORT INFORMATION
  Report Type: Spontaneous
  Country: BR (occurrence: BR)
  Receive Date: 20170222
  Receipt Date: 20170222
  Transmission Date: 20170428
  Serious: Yes (Hospitalization, Other)
  Sender: FDA-Public Use
  Company Number: BR-PFIZER INC-2016162205

PATIENT
  Age: 16 Year
  Sex: Female
  Weight: 62 kg

DRUGS (5)
  1. PREDNISONA [Concomitant]
     Active Substance: PREDNISONE
     Dosage: 30 MG,  20MG 1 CP AND A HALF A DAY
  2. ENBREL [Suspect]
     Active Substance: ETANERCEPT
     Indication: JUVENILE IDIOPATHIC ARTHRITIS
     Dosage: 50 MG, ONCE A WEEK
     Route: 058
     Dates: start: 201512
  3. METHOTREXATE SODIUM. [Suspect]
     Active Substance: METHOTREXATE SODIUM
     Indication: RHEUMATOID ARTHRITIS
     Dosage: 25 MG, ONCE PER WEEK
  4. CALCIUM [Concomitant]
     Active Substance: CALCIUM
     Dosage: 1800 MG, 3 CP OF 600MG A DAY
  5. FOLIC ACID. [Concomitant]
     Active Substance: FOLIC ACID
     Dosage: 5 MG, 1X/DAY

REACTIONS (7)
  - Haematochezia [Recovered/Resolved]
  - Hypersensitivity [Unknown]
  - Haemoglobin decreased [Unknown]
  - Rheumatoid arthritis [Unknown]
  - Incorrect product storage [Unknown]
  - Drug ineffective [Unknown]
  - Enteritis [Unknown]

NARRATIVE: CASE EVENT DATE: 2016
